FAERS Safety Report 8973982 (Version 1)
Quarter: 2012Q4

REPORT INFORMATION
  Report Type: 
  Country: US (occurrence: US)
  Receive Date: 20121218
  Receipt Date: 20121218
  Transmission Date: 20130627
  Serious: Yes (Hospitalization)
  Sender: FDA-Public Use
  Company Number: US-BRISTOL-MYERS SQUIBB COMPANY-16397259

PATIENT
  Age: 13 Year
  Sex: Female
  Weight: 64 kg

DRUGS (2)
  1. ABILIFY [Suspect]
     Indication: MAJOR DEPRESSION
     Dates: start: 201109
  2. ABILIFY [Suspect]
     Indication: SUICIDAL IDEATION
     Dates: start: 201109

REACTIONS (5)
  - Suicidal ideation [Unknown]
  - Weight increased [Unknown]
  - Fatigue [Unknown]
  - Tremor [Unknown]
  - Restlessness [Unknown]
